FAERS Safety Report 16049965 (Version 1)
Quarter: 2019Q1

REPORT INFORMATION
  Report Type: Report from Study
  Country: None (occurrence: CO)
  Receive Date: 20190308
  Receipt Date: 20190308
  Transmission Date: 20190418
  Serious: Yes (Hospitalization, Other)
  Sender: FDA-Public Use
  Company Number: CO-ABBVIE-19K-036-2695265-00

PATIENT
  Age: 31 Year
  Sex: Male

DRUGS (1)
  1. HUMIRA [Suspect]
     Active Substance: ADALIMUMAB
     Indication: ANKYLOSING SPONDYLITIS
     Route: 058
     Dates: start: 20180504, end: 20180919

REACTIONS (5)
  - Chills [Recovering/Resolving]
  - Eyelid ptosis [Recovering/Resolving]
  - Throat irritation [Recovering/Resolving]
  - Nasal septum deviation [Recovering/Resolving]
  - Hepatitis A [Recovering/Resolving]

NARRATIVE: CASE EVENT DATE: 201811
